FAERS Safety Report 9447770 (Version 1)
Quarter: 2013Q3

REPORT INFORMATION
  Report Type: Spontaneous
  Country: FR (occurrence: None)
  Receive Date: 20130805
  Receipt Date: 20130805
  Transmission Date: 20140515
  Serious: Yes (Other)
  Sender: FDA-Public Use
  Company Number: SYM-2013-07404

PATIENT
  Age: 13 Month
  Sex: Male

DRUGS (4)
  1. FLAGYL [Suspect]
     Indication: MASTOIDITIS
     Dosage: 3 IN 1 D
     Route: 048
     Dates: start: 20130625, end: 20130628
  2. FOSFOCINE [Suspect]
     Indication: MASTOIDITIS
     Dosage: NOT OTHERWISE SPECIFIED
     Route: 042
     Dates: start: 20130619, end: 20130623
  3. CEFTRIAXONE [Suspect]
     Indication: MASTOIDITIS
     Dosage: NOT OTHERWISE SPECIFIED
     Route: 042
     Dates: start: 20130619, end: 20130623
  4. AUGMENTIN [Suspect]
     Indication: MASTOIDITIS
     Route: 048
     Dates: start: 20130623, end: 20130627

REACTIONS (2)
  - Neutropenia [None]
  - Microcytic anaemia [None]
